FAERS Safety Report 5965052-6 (Version None)
Quarter: 2008Q4

REPORT INFORMATION
  Report Type: 
  Country: None (occurrence: None)
  Receive Date: 20081121
  Receipt Date: 20081105
  Transmission Date: 20090506
  Serious: Yes (Other)
  Sender: FDA-Public Use
  Company Number: 2007US002514

PATIENT
  Age: 74 Year
  Sex: Male
  Weight: 70.7 kg

DRUGS (8)
  1. AMEVIVE [Suspect]
     Indication: PSORIASIS
     Dosage: 15 MG, WEEKLY, INTRAMUSCULAR
     Route: 030
     Dates: start: 20040301, end: 20051116
  2. METHAZOLAMIDE (METHAZOLAMIDE) [Concomitant]
  3. ISOSORB (ISOSORBIDE DINITRATE) [Concomitant]
  4. ENAPRIL (ENALAPRIL MALEATE) [Concomitant]
  5. PLAVIX [Concomitant]
  6. SIMVACARD (SIMVASTATIN) [Concomitant]
  7. CARDIZEM [Concomitant]
  8. ASPIRIN [Concomitant]

REACTIONS (2)
  - LYMPHOMA [None]
  - SPLENOMEGALY [None]
